FAERS Safety Report 9740930 (Version 1)
Quarter: 2013Q4

REPORT INFORMATION
  Report Type: Spontaneous
  Country: US (occurrence: US)
  Receive Date: 20131209
  Receipt Date: 20131209
  Transmission Date: 20140711
  Serious: No
  Sender: FDA-Public Use
  Company Number: US-BIOGENIDEC-2013BI099669

PATIENT
  Sex: Female
  Weight: 78 kg

DRUGS (2)
  1. TECFIDERA [Suspect]
     Indication: PRODUCT USED FOR UNKNOWN INDICATION
     Route: 048
  2. LOSARTAN POT [Concomitant]

REACTIONS (3)
  - Dysgeusia [Unknown]
  - Nausea [Unknown]
  - Vomiting [Unknown]
